FAERS Safety Report 18310141 (Version 2)
Quarter: 2022Q3

REPORT INFORMATION
  Report Type: Spontaneous
  Country: US (occurrence: US)
  Receive Date: 20200925
  Receipt Date: 20220715
  Transmission Date: 20221026
  Serious: Yes (Other)
  Sender: FDA-Public Use
  Company Number: US-SAARTEMIS-SAC202009230112

PATIENT
  Age: 64 Year
  Sex: Male

DRUGS (1)
  1. ZANTAC [Suspect]
     Active Substance: RANITIDINE HYDROCHLORIDE
     Indication: Dyspepsia
     Dosage: UNK, QD
     Route: 065
     Dates: start: 200901, end: 201212

REACTIONS (7)
  - Prostate cancer [Unknown]
  - Gastric cancer stage IV [Unknown]
  - Haematological malignancy [Unknown]
  - Bone cancer [Unknown]
  - Leukaemia [Unknown]
  - Lymphoma [Unknown]
  - Lip neoplasm malignant stage unspecified [Unknown]

NARRATIVE: CASE EVENT DATE: 20120101
